FAERS Safety Report 6300147-9 (Version None)
Quarter: 2009Q3

REPORT INFORMATION
  Report Type: 
  Country: None (occurrence: None)
  Receive Date: 20090806
  Receipt Date: 20090726
  Transmission Date: 20100115
  Serious: Yes (Other)
  Sender: FDA-Public Use
  Company Number: PHHY2009GB31282

PATIENT
  Sex: Female

DRUGS (2)
  1. CLOZARIL [Suspect]
     Indication: SCHIZOPHRENIA
     Dosage: 400MG/DAY
     Route: 048
     Dates: start: 20090130
  2. CLOZARIL [Suspect]
     Dosage: 500MG/DAY

REACTIONS (7)
  - CONSCIOUSNESS FLUCTUATING [None]
  - DISTURBANCE IN ATTENTION [None]
  - DYSARTHRIA [None]
  - HEART RATE INCREASED [None]
  - HYPOTENSION [None]
  - OVERDOSE [None]
  - SALIVARY HYPERSECRETION [None]
